FAERS Safety Report 6667550-9 (Version None)
Quarter: 2010Q2

REPORT INFORMATION
  Report Type: 
  Country: None (occurrence: None)
  Receive Date: 20100405
  Receipt Date: 20100326
  Transmission Date: 20101027
  Serious: Yes (Hospitalization)
  Sender: FDA-Public Use
  Company Number: CH-ELI_LILLY_AND_COMPANY-CH201003007579

PATIENT
  Age: 80 Year
  Sex: Male
  Weight: 75 kg

DRUGS (5)
  1. CYMBALTA [Suspect]
     Indication: DEPRESSION
     Dosage: 30 MG, DAILY (1/D)
     Route: 048
     Dates: start: 20100126, end: 20100211
  2. CYMBALTA [Suspect]
     Dosage: UNK, DAILY (1/D)
     Route: 048
     Dates: start: 20100212, end: 20100214
  3. CORDARONE [Concomitant]
     Indication: ARRHYTHMIA
     Dosage: 2 D/F, DAILY (1/D)
     Route: 048
  4. CO-RENITEN [Concomitant]
     Indication: HYPERTENSION
     Dosage: UNK, UNKNOWN
     Route: 048
  5. GINKGO [Concomitant]
     Indication: CARDIOVASCULAR INSUFFICIENCY
     Dosage: UNK, UNKNOWN
     Route: 048

REACTIONS (2)
  - BLOOD VISCOSITY INCREASED [None]
  - LOSS OF CONSCIOUSNESS [None]
